FAERS Safety Report 5959373-0 (Version None)
Quarter: 2008Q4

REPORT INFORMATION
  Report Type: 
  Country: None (occurrence: None)
  Receive Date: 20081119
  Receipt Date: 20081119
  Transmission Date: 20090506
  Serious: Yes (Life-Threatening)
  Sender: FDA-Public Use
  Company Number: None

PATIENT
  Sex: Female
  Weight: 115 kg

DRUGS (10)
  1. REPAGLINIDE [Suspect]
     Indication: TYPE 2 DIABETES MELLITUS
     Dosage: 4 MG 3 X DAY
     Dates: start: 20080619, end: 20080701
  2. HAPARIN [Concomitant]
  3. LAMOTRIL [Concomitant]
  4. CHLORHEXIDINE GLUCONATE [Concomitant]
  5. LASIX [Concomitant]
  6. GABAPENTIN [Concomitant]
  7. NYSTATIN [Concomitant]
  8. SEROQUEL [Concomitant]
  9. TRICLYCIN (SP) [Concomitant]
  10. TEN [Concomitant]

REACTIONS (3)
  - BLOOD GLUCOSE DECREASED [None]
  - LETHARGY [None]
  - UNRESPONSIVE TO STIMULI [None]
